FAERS Safety Report 5671455-X (Version None)
Quarter: 2008Q1

REPORT INFORMATION
  Report Type: 
  Country: None (occurrence: None)
  Receive Date: 20080318
  Receipt Date: 20080312
  Transmission Date: 20080703
  Serious: Yes (Hospitalization)
  Sender: FDA-Public Use
  Company Number: GB-PFIZER INC-2008023144

PATIENT
  Age: 13 Year
  Sex: Male
  Weight: 58 kg

DRUGS (10)
  1. FLUCONAZOLE [Suspect]
     Dosage: DAILY DOSE:2MG
     Dates: start: 20071218, end: 20080109
  2. VINCRISTINE [Interacting]
     Dates: start: 20071204, end: 20080109
  3. ALLOPURINOL [Concomitant]
  4. CO-TRIMOXAZOLE [Concomitant]
  5. DAUNORUBICIN HCL [Concomitant]
  6. DEXAMETHASONE TAB [Concomitant]
  7. METHOTREXATE [Concomitant]
  8. ONDANSETRON [Concomitant]
  9. PARACETAMOL [Concomitant]
  10. RANITIDINE [Concomitant]

REACTIONS (3)
  - DRUG INTERACTION [None]
  - LIVER FUNCTION TEST ABNORMAL [None]
  - MUSCULAR WEAKNESS [None]
